FAERS Safety Report 7540180-2 (Version None)
Quarter: 2011Q2

REPORT INFORMATION
  Report Type: 
  Country: None (occurrence: None)
  Receive Date: 20110610
  Receipt Date: 20110531
  Transmission Date: 20111010
  Serious: Yes (Other)
  Sender: FDA-Public Use
  Company Number: US-GILEAD-2011-0039976

PATIENT
  Sex: Male

DRUGS (1)
  1. VISTIDE [Suspect]
     Indication: CYTOMEGALOVIRUS INFECTION

REACTIONS (2)
  - OVERDOSE [None]
  - COGNITIVE DISORDER [None]
